FAERS Safety Report 14733741 (Version 1)
Quarter: 2018Q2

REPORT INFORMATION
  Report Type: Spontaneous
  Country: US (occurrence: US)
  Receive Date: 20180409
  Receipt Date: 20180409
  Transmission Date: 20180711
  Serious: Yes (Hospitalization, Other)
  Sender: FDA-Public Use
  Company Number: US-GLAXOSMITHKLINE-US2018055900

PATIENT
  Sex: Male

DRUGS (21)
  1. PREDNISONE. [Concomitant]
     Active Substance: PREDNISONE
  2. TYLENOL ARTHRITIS PAIN [Concomitant]
     Active Substance: ACETAMINOPHEN
  3. OMEGA 3 [Concomitant]
     Active Substance: OMEGA-3 FATTY ACIDS
  4. CLOPIDOGREL [Concomitant]
     Active Substance: CLOPIDOGREL BISULFATE
  5. MONTELUKAST [Concomitant]
     Active Substance: MONTELUKAST SODIUM
  6. CALCIUM [Concomitant]
     Active Substance: CALCIUM
  7. BREO ELLIPTA [Suspect]
     Active Substance: FLUTICASONE FUROATE\VILANTEROL TRIFENATATE
     Indication: LUNG DISORDER
     Dosage: UNK UNK, 1D
     Route: 055
  8. ADVAIR HFA [Concomitant]
     Active Substance: FLUTICASONE PROPIONATE\SALMETEROL XINAFOATE
  9. CARVEDILOL. [Concomitant]
     Active Substance: CARVEDILOL
  10. LEVERMIR [Concomitant]
  11. VENTOLIN HFA [Suspect]
     Active Substance: ALBUTEROL SULFATE
     Indication: LUNG DISORDER
     Dosage: UNK
     Route: 055
  12. SERTRALINE [Concomitant]
     Active Substance: SERTRALINE HYDROCHLORIDE
  13. OXYGEN. [Concomitant]
     Active Substance: OXYGEN
  14. ATORVASTATIN [Concomitant]
     Active Substance: ATORVASTATIN
  15. HUMALOG [Concomitant]
     Active Substance: INSULIN LISPRO
  16. BUMETANIDE. [Concomitant]
     Active Substance: BUMETANIDE
  17. SPIRONOLACTONE. [Concomitant]
     Active Substance: SPIRONOLACTONE
  18. FLUTICASONE. [Concomitant]
     Active Substance: FLUTICASONE
  19. ELIQUIS [Concomitant]
     Active Substance: APIXABAN
  20. GABAPENTIN. [Concomitant]
     Active Substance: GABAPENTIN
  21. LOSARTAN. [Concomitant]
     Active Substance: LOSARTAN

REACTIONS (5)
  - Myocardial infarction [Unknown]
  - Ill-defined disorder [Unknown]
  - Overdose [Unknown]
  - Fall [Unknown]
  - Pneumonia [Unknown]
